FAERS Safety Report 24024251 (Version 1)
Quarter: 2024Q2

REPORT INFORMATION
  Report Type: Report from Study
  Country: CO (occurrence: CO)
  Receive Date: 20240627
  Receipt Date: 20240627
  Transmission Date: 20240716
  Serious: No
  Sender: FDA-Public Use
  Company Number: CO-ROCHE-3497192

PATIENT
  Age: 62 Year
  Sex: Female

DRUGS (1)
  1. ALECENSA [Suspect]
     Active Substance: ALECTINIB HYDROCHLORIDE
     Indication: Non-small cell lung cancer
     Route: 065

REACTIONS (5)
  - General physical health deterioration [Unknown]
  - Muscular weakness [Unknown]
  - Gait disturbance [Unknown]
  - Dizziness [Unknown]
  - Headache [Unknown]
